FAERS Safety Report 7303419-4 (Version None)
Quarter: 2011Q1

REPORT INFORMATION
  Report Type: 
  Country: None (occurrence: None)
  Receive Date: 20110221
  Receipt Date: 20110215
  Transmission Date: 20110831
  Serious: Yes (Other)
  Sender: FDA-Public Use
  Company Number: US-BAYER-2011-015690

PATIENT
  Sex: Female

DRUGS (2)
  1. YAZ [Suspect]
     Dosage: UNK
     Route: 048
     Dates: start: 20060801, end: 20080701
  2. YAZ [Suspect]
     Dosage: UNK
     Dates: start: 20090701, end: 20100201

REACTIONS (2)
  - PULMONARY THROMBOSIS [None]
  - DEEP VEIN THROMBOSIS [None]
